FAERS Safety Report 20217618 (Version 12)
Quarter: 2024Q1

REPORT INFORMATION
  Report Type: Other
  Country: CA (occurrence: None)
  Receive Date: 20211222
  Receipt Date: 20240313
  Transmission Date: 20240410
  Serious: No
  Sender: FDA-Public Use
  Company Number: CA-ROCHE-2983797

PATIENT
  Age: 46 Year
  Sex: Male

DRUGS (2)
  1. OCREVUS [Suspect]
     Active Substance: OCRELIZUMAB
     Indication: Primary progressive multiple sclerosis
     Dosage: 300 MG AT DAY 0 AND 14, THEN 600 MG EVERY 6 MONTH, CONCENTRATE FOR INTRAVENOUS INFUSION
     Route: 042
     Dates: start: 20190327
  2. MYRBETRIQ [Concomitant]
     Active Substance: MIRABEGRON

REACTIONS (7)
  - COVID-19 [Unknown]
  - Pyrexia [Recovered/Resolved]
  - Musculoskeletal stiffness [Not Recovered/Not Resolved]
  - Mobility decreased [Unknown]
  - General physical health deterioration [Not Recovered/Not Resolved]
  - Affect lability [Unknown]
  - Immobile [Not Recovered/Not Resolved]

NARRATIVE: CASE EVENT DATE: 20210909
